FAERS Safety Report 19532851 (Version 1)
Quarter: 2021Q3

REPORT INFORMATION
  Report Type: Other
  Country: TR (occurrence: TR)
  Receive Date: 20210714
  Receipt Date: 20210714
  Transmission Date: 20211014
  Serious: Yes (Hospitalization)
  Sender: FDA-Public Use
  Company Number: TR-ROCHE-2866027

PATIENT
  Age: 21 Year
  Sex: Female

DRUGS (5)
  1. WARFARIN [Concomitant]
     Active Substance: WARFARIN
     Indication: PRODUCT USED FOR UNKNOWN INDICATION
  2. ACTILYSE [Suspect]
     Active Substance: ALTEPLASE
     Dosage: 25 MILLIGRAMS; SECOND THROMBOLYTIC DOSE WAS REPEATED 24 HOURS LATER IN THE SAME WAY (LOW?DOSE, ULTRA
     Route: 042
  3. ENOXAPARIN [Concomitant]
     Active Substance: ENOXAPARIN
     Indication: PROSTHETIC CARDIAC VALVE THROMBOSIS
     Route: 058
  4. ACTILYSE [Suspect]
     Active Substance: ALTEPLASE
     Indication: PROSTHETIC CARDIAC VALVE THROMBOSIS
     Dosage: 25 MILLIGRAMS
     Route: 042
  5. HEPARIN [Concomitant]
     Active Substance: HEPARIN SODIUM
     Indication: PRODUCT USED FOR UNKNOWN INDICATION

REACTIONS (2)
  - Maternal exposure during pregnancy [Unknown]
  - Drug ineffective [Unknown]
